FAERS Safety Report 4700888-0 (Version None)
Quarter: 2005Q2

REPORT INFORMATION
  Report Type: 
  Country: None (occurrence: None)
  Receive Date: 20050113
  Receipt Date: 20050113
  Transmission Date: 20051028
  Serious: No
  Sender: FDA-Public Use
  Company Number: None

PATIENT
  Sex: Female
  Weight: 127.9144 kg

DRUGS (1)
  1. SOMA [Suspect]
     Dosage: ONE PO QID PRN
     Route: 048

REACTIONS (2)
  - ASTHMA [None]
  - DRUG INEFFECTIVE [None]
